FAERS Safety Report 17349670 (Version 1)
Quarter: 2020Q1

REPORT INFORMATION
  Report Type: Spontaneous
  Country: CA (occurrence: CA)
  Receive Date: 20200130
  Receipt Date: 20200130
  Transmission Date: 20200409
  Serious: Yes (Hospitalization)
  Sender: FDA-Public Use
  Company Number: CA-PFIZER INC-2020036123

PATIENT
  Age: 22 Year
  Sex: Female

DRUGS (4)
  1. CITALOPRAM HYDROBROMIDE. [Interacting]
     Active Substance: CITALOPRAM HYDROBROMIDE
     Dosage: 20 MG, 1X/DAY
     Route: 065
  2. TYLENOL [Interacting]
     Active Substance: ACETAMINOPHEN
     Dosage: 500 MG, 4X/DAY
     Route: 065
  3. IBUPROFEN. [Suspect]
     Active Substance: IBUPROFEN
     Dosage: 400 MG, 4X/DAY
     Route: 065
  4. BIAXIN [Interacting]
     Active Substance: CLARITHROMYCIN
     Dosage: 250 MG, 2X/DAY
     Route: 065

REACTIONS (7)
  - Drug interaction [Unknown]
  - Abdominal pain [Unknown]
  - Pyrexia [Unknown]
  - Vomiting [Unknown]
  - Nausea [Unknown]
  - Chills [Unknown]
  - Tremor [Unknown]
